FAERS Safety Report 17470863 (Version 1)
Quarter: 2020Q1

REPORT INFORMATION
  Report Type: Spontaneous
  Country: JP (occurrence: JP)
  Receive Date: 20200228
  Receipt Date: 20200228
  Transmission Date: 20200409
  Serious: Yes (Hospitalization)
  Sender: FDA-Public Use
  Company Number: JP-ORION CORPORATION ORION PHARMA-ENT 2020-0016

PATIENT
  Sex: Male

DRUGS (9)
  1. QUETIAPINE. [Concomitant]
     Active Substance: QUETIAPINE
     Route: 065
  2. LEVODOPA [Concomitant]
     Active Substance: LEVODOPA
     Route: 065
  3. ENTACAPONE (TRADE NAME UNKNOWN) [Suspect]
     Active Substance: ENTACAPONE
     Route: 048
  4. SELEGILINE HYDROCHLORIDE. [Concomitant]
     Active Substance: SELEGILINE HYDROCHLORIDE
     Route: 065
  5. ROTIGOTINE [Concomitant]
     Active Substance: ROTIGOTINE
     Route: 065
  6. ENTACAPONE (TRADE NAME UNKNOWN) [Suspect]
     Active Substance: ENTACAPONE
     Indication: PARKINSON^S DISEASE
     Route: 048
  7. ENTACAPONE (TRADE NAME UNKNOWN) [Suspect]
     Active Substance: ENTACAPONE
     Route: 048
  8. ZONISAMIDE. [Concomitant]
     Active Substance: ZONISAMIDE
     Route: 065
  9. ISTRADEFYLLINE [Concomitant]
     Active Substance: ISTRADEFYLLINE
     Route: 065

REACTIONS (9)
  - Therapeutic response shortened [Unknown]
  - Agitation [Unknown]
  - Dehydration [Recovered/Resolved]
  - Hypoacusis [Unknown]
  - Parkinson^s disease [Recovering/Resolving]
  - Cognitive disorder [Unknown]
  - Hallucination [Unknown]
  - Delusion [Unknown]
  - Dysphonia [Unknown]
